FAERS Safety Report 9862895 (Version 1)
Quarter: 2014Q1

REPORT INFORMATION
  Report Type: Spontaneous
  Country: US (occurrence: US)
  Receive Date: 20140203
  Receipt Date: 20140203
  Transmission Date: 20141002
  Serious: No
  Sender: FDA-Public Use
  Company Number: US-B.I. PHARMACEUTICALS,INC./RIDGEFIELD-2014-BI-02834BP

PATIENT
  Sex: Male
  Weight: 81 kg

DRUGS (2)
  1. COMBIVENT [Suspect]
     Indication: PRODUCT USED FOR UNKNOWN INDICATION
     Dosage: 4 PUF
     Route: 055
     Dates: start: 201307
  2. COMBIVENT INHALATION AEROSOL [Concomitant]
     Dosage: STRENGTH: 18 MCG / 103 MCG
     Route: 055

REACTIONS (2)
  - Dyspnoea [Recovered/Resolved]
  - Off label use [Unknown]
